FAERS Safety Report 5153101-7 (Version None)
Quarter: 2006Q4

REPORT INFORMATION
  Report Type: 
  Country: None (occurrence: None)
  Receive Date: 20061117
  Receipt Date: 20060828
  Transmission Date: 20070319
  Serious: Yes (Other)
  Sender: FDA-Public Use
  Company Number: US-GLAXOSMITHKLINE-A0618259A

PATIENT
  Age: 49 Year
  Sex: Female

DRUGS (4)
  1. DEXTROAMPHETAMINE [Suspect]
     Indication: ATTENTION DEFICIT/HYPERACTIVITY DISORDER
     Route: 048
  2. ALPRAZOLAM [Concomitant]
  3. BENTYL [Concomitant]
  4. ZANTAC [Concomitant]

REACTIONS (4)
  - DRUG INEFFECTIVE [None]
  - HEART RATE DECREASED [None]
  - SOMNOLENCE [None]
  - SUICIDAL IDEATION [None]
